FAERS Safety Report 6816333-5 (Version None)
Quarter: 2010Q3

REPORT INFORMATION
  Report Type: 
  Country: None (occurrence: None)
  Receive Date: 20100705
  Receipt Date: 20100621
  Transmission Date: 20110219
  Serious: Yes (Other)
  Sender: FDA-Public Use
  Company Number: PHHY2010US40584

PATIENT
  Age: 82 Year
  Sex: Female

DRUGS (3)
  1. RIVASTIGMINE [Suspect]
  2. LAMOTRIGINE [Concomitant]
     Dosage: 50 MG
  3. VENLAFAXINE [Concomitant]

REACTIONS (7)
  - APATHY [None]
  - CONFUSIONAL STATE [None]
  - DRUG INEFFECTIVE [None]
  - ILLUSION [None]
  - PARANOIA [None]
  - POVERTY OF SPEECH [None]
  - SOMNOLENCE [None]
